FAERS Safety Report 5694024-4 (Version None)
Quarter: 2008Q2

REPORT INFORMATION
  Report Type: 
  Country: None (occurrence: None)
  Receive Date: 20080401
  Receipt Date: 20080318
  Transmission Date: 20081010
  Serious: Yes (Other)
  Sender: FDA-Public Use
  Company Number: 2007332591

PATIENT
  Age: 40 Year
  Sex: Female

DRUGS (1)
  1. LISTERINE AGENT COOL BLUE BUBBLE BLAST (NO ACTIVE INGREDIENTS) [Suspect]
     Indication: DENTAL DISORDER PROPHYLAXIS
     Dosage: 10 MG 1 ML TIME PER DAY (1 IN 1 D), ORAL
     Route: 048
     Dates: start: 20070301, end: 20070401

REACTIONS (5)
  - DENTAL ALVEOLAR ANOMALY [None]
  - DENTAL CARIES [None]
  - GINGIVAL BLEEDING [None]
  - GINGIVAL ULCERATION [None]
  - TOOTH EROSION [None]
